FAERS Safety Report 18939618 (Version 2)
Quarter: 2021Q3

REPORT INFORMATION
  Report Type: Spontaneous
  Country: US (occurrence: US)
  Receive Date: 20210225
  Receipt Date: 20210712
  Transmission Date: 20211014
  Serious: Yes (Death, Hospitalization)
  Sender: FDA-Public Use
  Company Number: US-TEVA-2021-US-1882862

PATIENT
  Age: 8 Decade
  Sex: Male

DRUGS (1)
  1. HYDROXYCHLOROQUINE [Suspect]
     Active Substance: HYDROXYCHLOROQUINE
     Indication: COVID-19
     Dosage: 400 MILLIGRAM DAILY; FOR 5 DAYS
     Route: 065

REACTIONS (4)
  - Acute kidney injury [Fatal]
  - Renal phospholipidosis [Fatal]
  - Off label use [Unknown]
  - Electrocardiogram QT prolonged [Fatal]
